FAERS Safety Report 5319226-8 (Version None)
Quarter: 2007Q2

REPORT INFORMATION
  Report Type: 
  Country: None (occurrence: None)
  Receive Date: 20070508
  Receipt Date: 20070504
  Transmission Date: 20071010
  Serious: Yes (Hospitalization)
  Sender: FDA-Public Use
  Company Number: BEWYE230924NOV04

PATIENT
  Sex: Female

DRUGS (53)
  1. SIROLIMUS [Suspect]
     Indication: PROPHYLAXIS AGAINST TRANSPLANT REJECTION
     Route: 048
     Dates: start: 20041008, end: 20041008
  2. SIROLIMUS [Suspect]
     Route: 048
     Dates: start: 20041009, end: 20041009
  3. SIROLIMUS [Suspect]
     Route: 048
     Dates: start: 20041010, end: 20041010
  4. SIROLIMUS [Suspect]
     Route: 048
     Dates: start: 20041011, end: 20041018
  5. SIROLIMUS [Suspect]
     Route: 048
     Dates: start: 20041019, end: 20041104
  6. SIROLIMUS [Suspect]
     Route: 048
     Dates: start: 20041105, end: 20041115
  7. SIROLIMUS [Suspect]
     Route: 048
     Dates: start: 20041116, end: 20041125
  8. SIROLIMUS [Suspect]
     Route: 048
     Dates: start: 20041126, end: 20041202
  9. SIROLIMUS [Suspect]
     Route: 048
     Dates: start: 20041203, end: 20041206
  10. SIROLIMUS [Suspect]
     Route: 048
     Dates: start: 20041207, end: 20041213
  11. SIROLIMUS [Suspect]
     Route: 048
     Dates: start: 20041214, end: 20050105
  12. SIROLIMUS [Suspect]
     Route: 048
     Dates: start: 20050106, end: 20050119
  13. SIROLIMUS [Suspect]
     Route: 048
     Dates: start: 20050120, end: 20050124
  14. SIROLIMUS [Suspect]
     Route: 048
     Dates: start: 20050125, end: 20050221
  15. SIROLIMUS [Suspect]
     Route: 048
     Dates: start: 20050222, end: 20050306
  16. SIROLIMUS [Suspect]
     Route: 048
     Dates: start: 20050307, end: 20050309
  17. SIROLIMUS [Suspect]
     Route: 048
     Dates: start: 20050310, end: 20050323
  18. SIROLIMUS [Suspect]
     Route: 048
     Dates: start: 20050324, end: 20050420
  19. SIROLIMUS [Suspect]
     Route: 048
     Dates: start: 20050421, end: 20050526
  20. SIROLIMUS [Suspect]
     Route: 048
     Dates: start: 20050527, end: 20050622
  21. SIROLIMUS [Suspect]
     Route: 048
     Dates: start: 20050623, end: 20050704
  22. SIROLIMUS [Suspect]
     Route: 048
     Dates: start: 20050705, end: 20050824
  23. DACLIZUMAB [Concomitant]
     Dates: start: 20041007, end: 20041007
  24. DACLIZUMAB [Concomitant]
     Dates: start: 20041019, end: 20041019
  25. SOLU-MEDROL [Concomitant]
     Route: 030
     Dates: start: 20041007, end: 20041007
  26. SOLU-MEDROL [Concomitant]
     Route: 030
     Dates: start: 20041008, end: 20041008
  27. METHYLPREDNISOLONE 16MG TAB [Suspect]
     Route: 048
     Dates: start: 20041009, end: 20041108
  28. METHYLPREDNISOLONE 16MG TAB [Suspect]
     Route: 048
     Dates: start: 20041109, end: 20050420
  29. METHYLPREDNISOLONE 16MG TAB [Suspect]
     Route: 048
     Dates: start: 20050421, end: 20050608
  30. METHYLPREDNISOLONE 16MG TAB [Suspect]
     Route: 048
     Dates: start: 20050609, end: 20050622
  31. METHYLPREDNISOLONE 16MG TAB [Suspect]
     Route: 048
     Dates: start: 20050623
  32. TACROLIMUS [Suspect]
     Indication: PROPHYLAXIS AGAINST TRANSPLANT REJECTION
     Route: 048
     Dates: start: 20041007, end: 20041008
  33. TACROLIMUS [Suspect]
     Route: 048
     Dates: start: 20041009, end: 20041009
  34. TACROLIMUS [Suspect]
     Route: 048
     Dates: start: 20041010, end: 20041010
  35. TACROLIMUS [Suspect]
     Route: 048
     Dates: start: 20041011, end: 20041011
  36. TACROLIMUS [Suspect]
     Route: 048
     Dates: start: 20041012, end: 20041012
  37. TACROLIMUS [Suspect]
     Route: 048
     Dates: start: 20041013, end: 20041013
  38. TACROLIMUS [Suspect]
     Route: 048
     Dates: start: 20041014, end: 20041015
  39. TACROLIMUS [Suspect]
     Route: 048
     Dates: start: 20041016, end: 20041016
  40. TACROLIMUS [Suspect]
     Route: 048
     Dates: start: 20041017, end: 20041017
  41. TACROLIMUS [Suspect]
     Route: 048
     Dates: start: 20041018, end: 20041021
  42. TACROLIMUS [Suspect]
     Route: 048
     Dates: start: 20041022, end: 20041028
  43. TACROLIMUS [Suspect]
     Route: 048
     Dates: start: 20041029, end: 20041104
  44. TACROLIMUS [Suspect]
     Route: 048
     Dates: start: 20041105, end: 20041122
  45. TACROLIMUS [Suspect]
     Route: 048
     Dates: start: 20041123, end: 20041125
  46. TACROLIMUS [Suspect]
     Route: 048
     Dates: start: 20041126, end: 20041206
  47. TACROLIMUS [Suspect]
     Route: 048
     Dates: start: 20041207, end: 20041209
  48. TACROLIMUS [Suspect]
     Route: 048
     Dates: start: 20041210, end: 20041220
  49. TACROLIMUS [Suspect]
     Route: 048
     Dates: start: 20041221, end: 20041227
  50. TACROLIMUS [Suspect]
     Route: 048
     Dates: start: 20041228, end: 20050105
  51. TACROLIMUS [Suspect]
     Route: 048
     Dates: start: 20050106, end: 20050113
  52. TACROLIMUS [Suspect]
     Route: 048
     Dates: start: 20050114, end: 20050124
  53. TACROLIMUS [Suspect]
     Route: 048
     Dates: start: 20050125, end: 20050203

REACTIONS (1)
  - DIABETES MELLITUS [None]
